FAERS Safety Report 9548803 (Version 2)
Quarter: 2014Q3

REPORT INFORMATION
  Report Type: Spontaneous
  Country: US (occurrence: None)
  Receive Date: 20130627
  Receipt Date: 20140702
  Transmission Date: 20150326
  Serious: No
  Sender: FDA-Public Use
  Company Number: 1000045300

PATIENT
  Sex: Male

DRUGS (6)
  1. LIPITOR [Concomitant]
     Active Substance: ATORVASTATIN CALCIUM
  2. PAXIL (PAROXETINE) [Concomitant]
  3. INSULIN [Concomitant]
     Active Substance: INSULIN NOS
  4. SYNTHROID [Concomitant]
     Active Substance: LEVOTHYROXINE SODIUM
  5. LINZESS [Suspect]
     Active Substance: LINACLOTIDE
     Indication: CONSTIPATION
     Route: 048
     Dates: start: 20140429
  6. LINZESS [Suspect]
     Active Substance: LINACLOTIDE
     Indication: CONSTIPATION

REACTIONS (5)
  - Drug ineffective [None]
  - Abdominal pain upper [None]
  - Abdominal distension [None]
  - Dry mouth [None]
  - Abdominal discomfort [None]

NARRATIVE: CASE EVENT DATE: 201404
